FAERS Safety Report 15814168 (Version 1)
Quarter: 2019Q1

REPORT INFORMATION
  Report Type: Spontaneous
  Country: US (occurrence: US)
  Receive Date: 20190111
  Receipt Date: 20190111
  Transmission Date: 20190417
  Serious: No
  Sender: FDA-Public Use
  Company Number: US-JAZZ-2018-US-010681

PATIENT
  Age: 49 Year
  Sex: Female

DRUGS (7)
  1. MORPHINE [Suspect]
     Active Substance: MORPHINE
     Dosage: 3.43 ?G, QH
     Route: 037
     Dates: start: 20180409
  2. PRIALT [Suspect]
     Active Substance: ZICONOTIDE ACETATE
     Dosage: 0.58 ?G, QH
     Route: 037
     Dates: start: 20180301
  3. PRIALT [Suspect]
     Active Substance: ZICONOTIDE ACETATE
     Dosage: INCREASED BOLUS DOSE
     Route: 037
  4. PRIALT [Suspect]
     Active Substance: ZICONOTIDE ACETATE
     Dosage: 0.58 ?G, QH
     Route: 037
     Dates: start: 20180329
  5. PRIALT [Suspect]
     Active Substance: ZICONOTIDE ACETATE
     Dosage: 0.48 ?G, QH
     Route: 037
     Dates: start: 20180409, end: 20180424
  6. PRIALT [Suspect]
     Active Substance: ZICONOTIDE ACETATE
     Indication: PAIN
     Dosage: 0.46 ?G, QH
     Route: 037
     Dates: start: 20180219
  7. MORPHINE [Suspect]
     Active Substance: MORPHINE
     Indication: PAIN
     Dosage: 4.18 ?G, QH
     Route: 037
     Dates: start: 20180329

REACTIONS (3)
  - Asthenia [Recovered/Resolved]
  - Headache [Recovered/Resolved]
  - Therapeutic response decreased [Recovered/Resolved]

NARRATIVE: CASE EVENT DATE: 2018
